FAERS Safety Report 22170990 (Version 1)
Quarter: 2023Q2

REPORT INFORMATION
  Report Type: Spontaneous
  Country: GB (occurrence: GB)
  Receive Date: 20230404
  Receipt Date: 20230404
  Transmission Date: 20230722
  Serious: Yes (Life-Threatening, Hospitalization)
  Sender: FDA-Public Use
  Company Number: None

PATIENT

DRUGS (15)
  1. APIXABAN [Suspect]
     Active Substance: APIXABAN
     Indication: Atrial fibrillation
     Dosage: 5MG BD
  2. AMLODIPINE [Concomitant]
     Active Substance: AMLODIPINE BESYLATE
     Dosage: IN THE MORNING
  3. ATORVASTATIN [Concomitant]
     Active Substance: ATORVASTATIN
     Dosage: AT NIGHT
  4. BENZYDAMINE [Concomitant]
     Active Substance: BENZYDAMINE
     Dosage: 0.15%
  5. BUMETANIDE [Concomitant]
     Active Substance: BUMETANIDE
     Dosage: IN MORNING
  6. CANDESARTAN [Concomitant]
     Active Substance: CANDESARTAN
     Dosage: IN THE MORNING
  7. CLARITHROMYCIN [Concomitant]
     Active Substance: CLARITHROMYCIN
  8. DOXYCYCLINE [Concomitant]
     Active Substance: DOXYCYCLINE
     Dosage: 200MG NOW THEN 100MG DAILY FOR 7 DAYS
  9. IBUPROFEN [Concomitant]
     Active Substance: IBUPROFEN
     Dosage: 10% GEL, APPLY THREE TIMES A DAY PRN
  10. LANSOPRAZOLE [Concomitant]
     Active Substance: LANSOPRAZOLE
     Dosage: IN THE MORNING
  11. LEVETIRACETAM [Concomitant]
     Active Substance: LEVETIRACETAM
  12. NYSTATIN [Concomitant]
     Active Substance: NYSTATIN
     Dosage: (100,000UNITS/ML) 1ML FOUR TIMES A DAY
  13. ACETAMINOPHEN [Concomitant]
     Active Substance: ACETAMINOPHEN
     Dosage: FOUR TIMES A DAY PRN
  14. TEMAZEPAM [Concomitant]
     Active Substance: TEMAZEPAM
     Dosage: AT NIGHT
  15. TRAMADOL [Concomitant]
     Active Substance: TRAMADOL
     Dosage: 50MG-100MG FOUR TIMES A DAY PRN

REACTIONS (1)
  - Cerebrovascular accident [Recovered/Resolved]
